FAERS Safety Report 12467560 (Version 1)
Quarter: 2016Q2

REPORT INFORMATION
  Report Type: Spontaneous
  Country: US (occurrence: None)
  Receive Date: 20160614
  Receipt Date: 20160614
  Transmission Date: 20160815
  Serious: Yes (Hospitalization, Other)
  Sender: FDA-Public Use
  Company Number: None

PATIENT
  Age: 66 Year
  Sex: Male
  Weight: 90 kg

DRUGS (4)
  1. EPTIFIBATIDE. [Concomitant]
     Active Substance: EPTIFIBATIDE
  2. BIVALIRUDIN, 250MG/VIAL HOSPIRA [Suspect]
     Active Substance: BIVALIRUDIN
     Indication: PERCUTANEOUS CORONARY INTERVENTION
     Dosage: INFUSION DURING PC INTRAVENOUS DRIP
     Route: 041
     Dates: start: 20160609, end: 20160609
  3. APIXABAN [Concomitant]
     Active Substance: APIXABAN
  4. ASPIRIN. [Concomitant]
     Active Substance: ASPIRIN

REACTIONS (2)
  - Vascular stent thrombosis [None]
  - Surgical procedure repeated [None]

NARRATIVE: CASE EVENT DATE: 20160609
